FAERS Safety Report 20535392 (Version 1)
Quarter: 2022Q1

REPORT INFORMATION
  Report Type: Spontaneous
  Country: CN (occurrence: CN)
  Receive Date: 20220302
  Receipt Date: 20220302
  Transmission Date: 20220423
  Serious: Yes (Hospitalization, Other)
  Sender: FDA-Public Use
  Company Number: CN-GRUNENTHAL-2021-269375

PATIENT
  Age: 33 Year
  Sex: Male
  Weight: 103 kg

DRUGS (1)
  1. TRAMADOL HYDROCHLORIDE [Suspect]
     Active Substance: TRAMADOL HYDROCHLORIDE
     Indication: Ureterolithiasis
     Dosage: 0.1 GRAM, 1/DAY
     Route: 030
     Dates: start: 20210825, end: 20210825

REACTIONS (6)
  - Nausea [Recovering/Resolving]
  - Chest discomfort [Recovering/Resolving]
  - Cold sweat [Recovering/Resolving]
  - Loss of consciousness [Recovering/Resolving]
  - Blood pressure decreased [Recovering/Resolving]
  - Anaphylactic shock [Recovering/Resolving]

NARRATIVE: CASE EVENT DATE: 20210825
